FAERS Safety Report 4352268-8 (Version None)
Quarter: 2004Q2

REPORT INFORMATION
  Report Type: 
  Country: None (occurrence: None)
  Receive Date: 20040427
  Receipt Date: 20040114
  Transmission Date: 20050107
  Serious: Yes (Life-Threatening, Hospitalization, Other)
  Sender: FDA-Public Use
  Company Number: WAES0307USA00185

PATIENT
  Age: 57 Year
  Sex: Male
  Weight: 70.3075 kg

DRUGS (11)
  1. EMEND [Suspect]
     Indication: PROPHYLAXIS OF NAUSEA AND VOMITING
     Dosage: 80 MG/DAILY/PO
     Route: 048
     Dates: start: 20030530, end: 20030530
  2. EMEND [Suspect]
     Indication: PROPHYLAXIS OF NAUSEA AND VOMITING
     Dosage: 80 MG/DAILY/PO
     Route: 048
     Dates: start: 20030601, end: 20030602
  3. ANZEMET [Concomitant]
  4. DECADRON [Concomitant]
  5. DURAGESIC [Concomitant]
  6. PHENERGAN (PROMETHAZINE HYDROCHL [Concomitant]
  7. PLATINOL [Concomitant]
  8. REGLAN [Concomitant]
  9. ZOFRAN [Concomitant]
  10. CYANOCOBALAMIN [Concomitant]
  11. FOLIC ACID [Concomitant]

REACTIONS (1)
  - MYOCARDIAL INFARCTION [None]
